FAERS Safety Report 21304764 (Version 1)
Quarter: 2022Q3

REPORT INFORMATION
  Report Type: Spontaneous
  Country: US (occurrence: None)
  Receive Date: 20220907
  Receipt Date: 20220907
  Transmission Date: 20221027
  Serious: No
  Sender: FDA-Public Use
  Company Number: US-FARMAPROD-202109-1637

PATIENT
  Age: 71 Year
  Sex: Male

DRUGS (21)
  1. OXERVATE [Suspect]
     Active Substance: CENEGERMIN-BKBJ
     Indication: Neurotrophic keratopathy
     Route: 047
     Dates: start: 20210816
  2. CORTISONE [Concomitant]
     Active Substance: CORTISONE
  3. COSOPT PF [Concomitant]
     Active Substance: DORZOLAMIDE HYDROCHLORIDE\TIMOLOL MALEATE
     Dosage: 2 %-0.5 % DROPERETTE
  4. TRULICITY [Concomitant]
     Active Substance: DULAGLUTIDE
     Dosage: 4.5 MG /0.5
  5. REFRESH CLASSIC [Concomitant]
     Active Substance: POLYVINYL ALCOHOL\POVIDONE
  6. LOSARTAN POTASSIUM [Concomitant]
     Active Substance: LOSARTAN POTASSIUM
  7. VALTREX [Concomitant]
     Active Substance: VALACYCLOVIR HYDROCHLORIDE
  8. WELLBUTRIN SR [Concomitant]
     Active Substance: BUPROPION HYDROCHLORIDE
  9. BRILINTA [Concomitant]
     Active Substance: TICAGRELOR
  10. GABAPENTIN [Concomitant]
     Active Substance: GABAPENTIN
  11. METOPROLOL TARTRATE [Concomitant]
     Active Substance: METOPROLOL TARTRATE
  12. GLIPIZIDE [Concomitant]
     Active Substance: GLIPIZIDE
  13. TRADJENTA [Concomitant]
     Active Substance: LINAGLIPTIN
  14. ASPIRIN [Concomitant]
     Active Substance: ASPIRIN
  15. POTASSIUM CITRATE [Concomitant]
     Active Substance: POTASSIUM CITRATE
  16. VITAMIN D3 [Concomitant]
     Active Substance: CHOLECALCIFEROL
  17. PREDNISOLONE [Concomitant]
     Active Substance: PREDNISOLONE
  18. ALPRAZOLAM [Concomitant]
     Active Substance: ALPRAZOLAM
  19. POLYMYXIN B/TRIMETHOPRIM [Concomitant]
  20. PRALUENT [Concomitant]
     Active Substance: ALIROCUMAB
  21. ROCKLATAN [Concomitant]
     Active Substance: LATANOPROST\NETARSUDIL MESYLATE

REACTIONS (2)
  - Intraocular pressure increased [Unknown]
  - Off label use [Unknown]
